FAERS Safety Report 14626541 (Version 1)
Quarter: 2018Q1

REPORT INFORMATION
  Report Type: Report from Study
  Country: US (occurrence: US)
  Receive Date: 20180312
  Receipt Date: 20180312
  Transmission Date: 20180509
  Serious: Yes (Hospitalization, Other)
  Sender: FDA-Public Use
  Company Number: US-MYLANLABS-2018M1015457

PATIENT
  Age: 70 Year
  Sex: Male
  Weight: 105 kg

DRUGS (1)
  1. CLOZAPINE. [Suspect]
     Active Substance: CLOZAPINE
     Indication: SCHIZOPHRENIA
     Dosage: 4 DF, QD
     Dates: end: 201803

REACTIONS (3)
  - Neutropenia [Not Recovered/Not Resolved]
  - Febrile neutropenia [Recovering/Resolving]
  - B-cell lymphoma [Unknown]

NARRATIVE: CASE EVENT DATE: 2018
